FAERS Safety Report 14993627 (Version 2)
Quarter: 2019Q2

REPORT INFORMATION
  Report Type: Spontaneous
  Country: TW (occurrence: TW)
  Receive Date: 20180611
  Receipt Date: 20190530
  Transmission Date: 20190711
  Serious: Yes (Hospitalization)
  Sender: FDA-Public Use
  Company Number: TW-SUN PHARMACEUTICAL INDUSTRIES LTD-2018R1-175229

PATIENT
  Age: 30 Year
  Sex: Female

DRUGS (2)
  1. BUPROPION. [Suspect]
     Active Substance: BUPROPION
     Indication: BIPOLAR II DISORDER
     Dosage: 300 MG, DAILY
     Route: 065
     Dates: start: 2016
  2. LITHIUM. [Concomitant]
     Active Substance: LITHIUM
     Indication: BIPOLAR II DISORDER
     Dosage: 600 MG, DAILY
     Route: 065

REACTIONS (1)
  - Dyskinesia [Recovering/Resolving]
